FAERS Safety Report 17134621 (Version 6)
Quarter: 2022Q3

REPORT INFORMATION
  Report Type: Report from Study
  Country: BR (occurrence: BR)
  Receive Date: 20191210
  Receipt Date: 20220708
  Transmission Date: 20221027
  Serious: Yes (Hospitalization, Other)
  Sender: FDA-Public Use
  Company Number: None

PATIENT
  Age: 56 Year
  Sex: Female

DRUGS (2)
  1. COSENTYX [Suspect]
     Active Substance: SECUKINUMAB
     Indication: Psoriasis
     Dosage: UNK (2 PENS TO APPLICATION)
     Route: 065
     Dates: start: 20191030
  2. COSENTYX [Suspect]
     Active Substance: SECUKINUMAB
     Dosage: 300 MG (2 PENS)
     Route: 065
     Dates: start: 20191031

REACTIONS (14)
  - Fall [Not Recovered/Not Resolved]
  - Upper limb fracture [Not Recovered/Not Resolved]
  - Humerus fracture [Recovering/Resolving]
  - Immunosuppression [Unknown]
  - Balance disorder [Unknown]
  - Injury [Unknown]
  - Ear disorder [Unknown]
  - Weight increased [Unknown]
  - Hyperhidrosis [Recovered/Resolved]
  - Skin disorder [Recovered/Resolved]
  - Skin burning sensation [Recovered/Resolved]
  - Psoriasis [Unknown]
  - Psoriasis [Recovered/Resolved]
  - Erythema [Recovered/Resolved]

NARRATIVE: CASE EVENT DATE: 20191130
